FAERS Safety Report 9294026 (Version 1)
Quarter: 2013Q1

REPORT INFORMATION
  Report Type: Spontaneous
  Country: US (occurrence: None)
  Receive Date: 20121226
  Receipt Date: 20121226
  Transmission Date: 20140127
  Serious: Yes (Other)
  Sender: FDA-Public Use
  Company Number: 363291

PATIENT
  Age: 55 Year
  Sex: Female

DRUGS (2)
  1. NOVOLOG FLEXPEN [Suspect]
     Indication: TYPE 1 DIABETES MELLITUS
     Dosage: 10/21/2012 TO 10/21/2012, 46 U, SUBCUTANEOUS
  2. LEVEMIR FLEXPEN [Suspect]
     Indication: TYPE 1 DIABETES MELLITUS
     Dosage: 10/21/2012 TO 10/21/2012, 12 U, SUBCUTANEOUS

REACTIONS (2)
  - Wrong drug administered [None]
  - Blood glucose decreased [None]
